FAERS Safety Report 6356047-1 (Version None)
Quarter: 2009Q3

REPORT INFORMATION
  Report Type: 
  Country: None (occurrence: None)
  Receive Date: 20090910
  Receipt Date: 20090910
  Transmission Date: 20100115
  Serious: Yes (Life-Threatening, Hospitalization)
  Sender: FDA-Public Use
  Company Number: None

PATIENT
  Age: 62 Year
  Sex: Male

DRUGS (2)
  1. NAFCILLIN [Suspect]
     Indication: CARDIOVASCULAR DISORDER
     Dosage: 2 GM OTHER IV
     Dates: start: 20090801, end: 20090803
  2. NAFCILLIN [Suspect]
     Indication: SURGERY
     Dosage: 2 GM OTHER IV
     Dates: start: 20090801, end: 20090803

REACTIONS (1)
  - NEPHRITIS [None]
